FAERS Safety Report 12783935 (Version 1)
Quarter: 2016Q3

REPORT INFORMATION
  Report Type: Spontaneous
  Country: FI (occurrence: FI)
  Receive Date: 20160927
  Receipt Date: 20160927
  Transmission Date: 20161109
  Serious: Yes (Disabling, Other)
  Sender: FDA-Public Use
  Company Number: FI-EDGEMONT-2016EDG00027

PATIENT
  Sex: Male

DRUGS (1)
  1. SERONIL (FLUOXETINE) [Suspect]
     Active Substance: FLUOXETINE HYDROCHLORIDE
     Indication: PANIC DISORDER

REACTIONS (1)
  - Psychotic disorder [Not Recovered/Not Resolved]
